FAERS Safety Report 6866441-8 (Version None)
Quarter: 2010Q3

REPORT INFORMATION
  Report Type: 
  Country: None (occurrence: None)
  Receive Date: 20100722
  Receipt Date: 20100709
  Transmission Date: 20110219
  Serious: Yes (Other)
  Sender: FDA-Public Use
  Company Number: PHHY2010NZ45259

PATIENT
  Sex: Female

DRUGS (6)
  1. GLEEVEC [Suspect]
     Indication: GASTROINTESTINAL STROMAL TUMOUR
     Dosage: 400 MG, UNK
     Route: 048
     Dates: start: 20041201, end: 20070301
  2. GLEEVEC [Suspect]
     Dosage: 300 MG, UNK
     Route: 048
     Dates: start: 20070301, end: 20090601
  3. GLEEVEC [Suspect]
     Dosage: 200 MG, UNK
     Route: 048
     Dates: start: 20090701, end: 20090901
  4. GLEEVEC [Suspect]
     Dosage: 100 MG, UNK
     Route: 048
     Dates: start: 20090901, end: 20100701
  5. OMEPRAZOLE [Concomitant]
  6. CODEINE PHOSPHATE [Concomitant]
     Indication: MUSCULOSKELETAL PAIN
     Dosage: 15 MG, QHS

REACTIONS (1)
  - SKIN TOXICITY [None]
